FAERS Safety Report 11088463 (Version 1)
Quarter: 2015Q2

REPORT INFORMATION
  Report Type: Spontaneous
  Country: CN (occurrence: CN)
  Receive Date: 20150504
  Receipt Date: 20150504
  Transmission Date: 20150821
  Serious: Yes (Hospitalization, Other)
  Sender: FDA-Public Use
  Company Number: CN-PFIZER INC-2015133764

PATIENT
  Age: 53 Year
  Sex: Male
  Weight: 60 kg

DRUGS (1)
  1. ATORVASTATIN CALCIUM. [Suspect]
     Active Substance: ATORVASTATIN CALCIUM
     Indication: HYPERLIPIDAEMIA
     Dosage: 20 MG, 1X/DAY
     Route: 048
     Dates: start: 20141018, end: 20141031

REACTIONS (3)
  - Myocardial infarction [Unknown]
  - Hepatic function abnormal [Recovering/Resolving]
  - Coronary artery disease [Unknown]

NARRATIVE: CASE EVENT DATE: 201410
